FAERS Safety Report 10489188 (Version 1)
Quarter: 2014Q4

REPORT INFORMATION
  Report Type: Spontaneous
  Country: US (occurrence: US)
  Receive Date: 20141002
  Receipt Date: 20141002
  Transmission Date: 20150528
  Serious: No
  Sender: FDA-Public Use
  Company Number: US-PFIZER INC-2014269809

PATIENT
  Age: 50 Year
  Sex: Female
  Weight: 89.34 kg

DRUGS (1)
  1. SOMAVERT [Suspect]
     Active Substance: PEGVISOMANT
     Indication: HORMONE REPLACEMENT THERAPY
     Dosage: 20 MG, ALTERNATE DAY
     Dates: start: 2007

REACTIONS (1)
  - Laboratory test abnormal [Unknown]

NARRATIVE: CASE EVENT DATE: 2014
